FAERS Safety Report 9770531 (Version 1)
Quarter: 2013Q4

REPORT INFORMATION
  Report Type: Spontaneous
  Country: US (occurrence: US)
  Receive Date: 20131218
  Receipt Date: 20131218
  Transmission Date: 20140711
  Serious: No
  Sender: FDA-Public Use
  Company Number: US-BAYER-2013-151870

PATIENT
  Age: 49 Year
  Sex: Female

DRUGS (1)
  1. FINACEA [Suspect]
     Indication: ROSACEA
     Dosage: UNK UNK, QD
     Route: 061

REACTIONS (3)
  - Skin disorder [Not Recovered/Not Resolved]
  - Mass [Not Recovered/Not Resolved]
  - Drug ineffective [None]
